FAERS Safety Report 26158660 (Version 1)
Quarter: 2025Q4

REPORT INFORMATION
  Report Type: Spontaneous
  Country: EU (occurrence: EU)
  Receive Date: 20251215
  Receipt Date: 20251215
  Transmission Date: 20260118
  Serious: Yes (Hospitalization)
  Sender: MERCK KGAA
  Company Number: None

PATIENT
  Age: 77 Year
  Sex: Male
  Weight: 70 kg

DRUGS (4)
  1. METFORMIN [Interacting]
     Active Substance: METFORMIN HYDROCHLORIDE
     Indication: Type 2 diabetes mellitus
     Dosage: 1 G X2/J
     Dates: end: 20200309
  2. METFORMIN [Interacting]
     Active Substance: METFORMIN HYDROCHLORIDE
     Dosage: 1 G X3/J
     Dates: start: 20200310, end: 20200405
  3. FUROSEMIDE [Interacting]
     Active Substance: FUROSEMIDE
     Indication: Cardiac failure
     Dosage: 40 MG/J
     Dates: end: 20200322
  4. FUROSEMIDE [Interacting]
     Active Substance: FUROSEMIDE
     Dosage: 60 MG X 2/J
     Dates: start: 20200323, end: 20200405

REACTIONS (3)
  - Lactic acidosis [Recovered/Resolved]
  - Drug level above therapeutic [Recovered/Resolved]
  - Drug interaction [Recovered/Resolved]

NARRATIVE: CASE EVENT DATE: 20200405
